FAERS Safety Report 14221321 (Version 1)
Quarter: 2017Q4

REPORT INFORMATION
  Report Type: Spontaneous
  Country: US (occurrence: US)
  Receive Date: 20171124
  Receipt Date: 20171124
  Transmission Date: 20180321
  Serious: No
  Sender: FDA-Public Use
  Company Number: US-PFIZER INC-2017505638

PATIENT
  Age: 53 Year
  Sex: Male

DRUGS (1)
  1. EUCRISA [Suspect]
     Active Substance: CRISABOROLE
     Indication: RASH
     Dosage: UNK, AS NEEDED [APPLY TO AFFECTED AREA OF RASH TWICE DAILY AS NEEDED WHEN FLARED]
     Route: 061

REACTIONS (1)
  - Drug ineffective [Unknown]
